FAERS Safety Report 11156931 (Version 2)
Quarter: 2015Q2

REPORT INFORMATION
  Report Type: Spontaneous
  Country: PT (occurrence: PT)
  Receive Date: 20150602
  Receipt Date: 20150615
  Transmission Date: 20150821
  Serious: Yes (Hospitalization, Other)
  Sender: FDA-Public Use
  Company Number: PT-BAYER-2015-276193

PATIENT
  Sex: Female

DRUGS (1)
  1. ASPIRINA [Suspect]
     Active Substance: ASPIRIN
     Dosage: 500 MG, UNK
     Route: 048

REACTIONS (4)
  - Swelling face [None]
  - Local swelling [None]
  - Dyspnoea [None]
  - Herpes virus infection [None]
